FAERS Safety Report 8082364-3 (Version None)
Quarter: 2012Q1

REPORT INFORMATION
  Report Type: 
  Country: None (occurrence: None)
  Receive Date: 20120127
  Receipt Date: 20110216
  Transmission Date: 20120608
  Serious: No
  Sender: FDA-Public Use
  Company Number: US-ABBOTT-11P-163-0705965-00

PATIENT
  Age: 34 Year
  Sex: Male

DRUGS (3)
  1. HUMIRA [Suspect]
  2. HUMIRA [Suspect]
     Indication: PSORIASIS
     Dosage: 80 MG LOADING DOSE
     Dates: start: 20110216, end: 20110216
  3. HUMIRA [Suspect]
     Dosage: DAY 8

REACTIONS (3)
  - HYPERHIDROSIS [None]
  - SYNCOPE [None]
  - DIZZINESS [None]
